FAERS Safety Report 6045925-9 (Version None)
Quarter: 2009Q1

REPORT INFORMATION
  Report Type: 
  Country: None (occurrence: None)
  Receive Date: 20090116
  Receipt Date: 20090113
  Transmission Date: 20090719
  Serious: Yes (Death, Hospitalization)
  Sender: FDA-Public Use
  Company Number: 2009-00033

PATIENT
  Age: 71 Year

DRUGS (6)
  1. VELCADE [Suspect]
     Indication: GASTRIC CANCER
     Dosage: 2 MG, INTRAVENOUS
     Route: 042
     Dates: start: 20081210, end: 20081210
  2. VELCADE [Suspect]
     Indication: GASTRIC CANCER
     Dosage: 2 MG, INTRAVENOUS
     Route: 042
     Dates: start: 20081210, end: 20081210
  3. EPIRUBICIN [Suspect]
     Indication: GASTRIC CANCER
     Dosage: 75 MG, INTRAVENOUS
     Route: 042
     Dates: start: 20081203, end: 20081203
  4. CARBOPLATIN [Suspect]
     Indication: GASTRIC CANCER
     Dosage: 50 MG, INTRAVENOUS
     Route: 042
     Dates: start: 20081203
  5. CAPECITABINE(CAPECITABINE) TABLET [Suspect]
     Indication: GASTRIC CANCER
     Dosage: 800 MG, ORAL
     Route: 048
     Dates: start: 20081203, end: 20081203
  6. CYCLIZINE [Concomitant]

REACTIONS (3)
  - GASTRIC CANCER [None]
  - HAEMATEMESIS [None]
  - MALIGNANT NEOPLASM PROGRESSION [None]
